FAERS Safety Report 5921806-3 (Version None)
Quarter: 2008Q4

REPORT INFORMATION
  Report Type: 
  Country: None (occurrence: None)
  Receive Date: 20081017
  Receipt Date: 20081007
  Transmission Date: 20090506
  Serious: Yes (Life-Threatening, Hospitalization)
  Sender: FDA-Public Use
  Company Number: NL-AMGEN-UK312415

PATIENT
  Sex: Female
  Weight: 57 kg

DRUGS (1)
  1. NEUPOGEN [Suspect]
     Indication: PERIPHERAL BLOOD STEM CELL APHERESIS
     Route: 058
     Dates: start: 20080927, end: 20081002

REACTIONS (1)
  - SPLENIC RUPTURE [None]
